FAERS Safety Report 14346212 (Version 4)
Quarter: 2018Q1

REPORT INFORMATION
  Report Type: Spontaneous
  Country: BE (occurrence: BE)
  Receive Date: 20180103
  Receipt Date: 20180202
  Transmission Date: 20180509
  Serious: Yes (Other)
  Sender: FDA-Public Use
  Company Number: BE-PFIZER INC-2017552283

PATIENT
  Age: 63 Year
  Sex: Female

DRUGS (4)
  1. DOXYCYCLINE. [Concomitant]
     Active Substance: DOXYCYCLINE
     Indication: PLASMODIUM FALCIPARUM INFECTION
     Dosage: UNK
     Route: 042
  2. NOREPINEPHRINE BITARTRATE. [Suspect]
     Active Substance: NOREPINEPHRINE BITARTRATE
     Indication: SHOCK
     Dosage: 46 UG/MINUTES
  3. QUININE [Concomitant]
     Active Substance: QUININE
     Indication: PLASMODIUM FALCIPARUM INFECTION
     Dosage: UNK
     Route: 042
  4. COARTEM [Concomitant]
     Active Substance: ARTEMETHER\LUMEFANTRINE
     Indication: MALARIA
     Dosage: UNK

REACTIONS (2)
  - Colitis ischaemic [Unknown]
  - Gangrene [Recovered/Resolved with Sequelae]
